FAERS Safety Report 7553355-3 (Version None)
Quarter: 2011Q2

REPORT INFORMATION
  Report Type: 
  Country: None (occurrence: None)
  Receive Date: 20110617
  Receipt Date: 20110609
  Transmission Date: 20111010
  Serious: Yes (Hospitalization)
  Sender: FDA-Public Use
  Company Number: DE-AMGEN-DEUCT2011030579

PATIENT
  Age: 40 Year
  Sex: Female
  Weight: 90 kg

DRUGS (2)
  1. ETANERCEPT [Suspect]
     Indication: PSORIASIS
     Dosage: 50 MG, 2 TIMES/WK
     Route: 058
     Dates: start: 20100331, end: 20100519
  2. ETANERCEPT [Suspect]
     Indication: PSORIATIC ARTHROPATHY

REACTIONS (1)
  - EMBOLISM [None]
